FAERS Safety Report 5017676-0 (Version None)
Quarter: 2006Q2

REPORT INFORMATION
  Report Type: 
  Country: None (occurrence: None)
  Receive Date: 20060605
  Receipt Date: 20060524
  Transmission Date: 20061013
  Serious: Yes (Other)
  Sender: FDA-Public Use
  Company Number: US-JNJFOC-20060505411

PATIENT
  Sex: Male
  Weight: 93.44 kg

DRUGS (4)
  1. REMICADE [Suspect]
     Route: 042
  2. REMICADE [Suspect]
     Route: 042
  3. REMICADE [Suspect]
     Indication: RHEUMATOID ARTHRITIS
     Route: 042
  4. DIOVAN [Concomitant]
     Indication: HYPERTENSION

REACTIONS (3)
  - FATIGUE [None]
  - LYMPHOMA [None]
  - SERUM FERRITIN INCREASED [None]
